FAERS Safety Report 6302056-8 (Version None)
Quarter: 2009Q3

REPORT INFORMATION
  Report Type: 
  Country: None (occurrence: None)
  Receive Date: 20090807
  Receipt Date: 20090730
  Transmission Date: 20100115
  Serious: Yes (Hospitalization, Other)
  Sender: FDA-Public Use
  Company Number: US-ABBOTT-09P-163-0588591-00

PATIENT
  Sex: Female
  Weight: 76.726 kg

DRUGS (5)
  1. HUMIRA [Suspect]
     Indication: PSORIASIS
     Dates: start: 20090501
  2. LORAZEPAM [Concomitant]
     Indication: ANXIETY
  3. ZOLOFT [Concomitant]
     Indication: DEPRESSION
  4. BENICAR [Concomitant]
     Indication: HYPERTENSION
  5. ZOCOR [Concomitant]
     Indication: BLOOD CHOLESTEROL INCREASED
     Dates: start: 20090623

REACTIONS (4)
  - ABDOMINAL PAIN [None]
  - DRUG DOSE OMISSION [None]
  - EAR INFECTION [None]
  - MEDICAL DEVICE COMPLICATION [None]
